FAERS Safety Report 17179739 (Version 2)
Quarter: 2020Q1

REPORT INFORMATION
  Report Type: Report from Study
  Country: None (occurrence: US)
  Receive Date: 20191220
  Receipt Date: 20200122
  Transmission Date: 20200409
  Serious: Yes (Other)
  Sender: FDA-Public Use
  Company Number: US-ABBVIE-19K-163-2968174-00

PATIENT
  Sex: Female

DRUGS (3)
  1. HUMIRA [Suspect]
     Active Substance: ADALIMUMAB
     Indication: PSORIASIS
     Dosage: DAY 1
     Route: 058
     Dates: start: 20191001, end: 20191001
  2. HUMIRA [Suspect]
     Active Substance: ADALIMUMAB
     Indication: PSORIASIS
     Dosage: DAY 8
     Route: 058
     Dates: start: 20191008, end: 201910
  3. HUMIRA [Suspect]
     Active Substance: ADALIMUMAB
     Route: 058
     Dates: start: 20191022

REACTIONS (14)
  - Pruritus [Recovering/Resolving]
  - Anger [Recovered/Resolved]
  - Erythema [Recovering/Resolving]
  - Helplessness [Recovered/Resolved]
  - Skin indentation [Not Recovered/Not Resolved]
  - Bone marrow failure [Not Recovered/Not Resolved]
  - Self-consciousness [Recovered/Resolved]
  - Frustration tolerance decreased [Recovered/Resolved]
  - Impaired quality of life [Recovered/Resolved]
  - General physical condition abnormal [Recovered/Resolved]
  - Skin irritation [Recovered/Resolved]
  - Chromaturia [Recovering/Resolving]
  - Emotional distress [Recovered/Resolved]
  - Pain of skin [Recovered/Resolved]

NARRATIVE: CASE EVENT DATE: 2019
